FAERS Safety Report 19638066 (Version 1)
Quarter: 2021Q3

REPORT INFORMATION
  Report Type: Spontaneous
  Country: HR (occurrence: HR)
  Receive Date: 20210730
  Receipt Date: 20210730
  Transmission Date: 20211014
  Serious: Yes (Other)
  Sender: FDA-Public Use
  Company Number: HR-ASTRAZENECA-2021A639105

PATIENT
  Age: 17 Year
  Weight: 70 kg

DRUGS (2)
  1. QUETIAPIN [Suspect]
     Active Substance: QUETIAPINE
     Dosage: 9 TABLETL QUETIAPINE OF 25 MG
     Route: 048
     Dates: start: 20210403, end: 20210403
  2. ZOLOFT [Suspect]
     Active Substance: SERTRALINE HYDROCHLORIDE
     Dosage: 28 TABLET OF ZOLOFT 50 MG
     Route: 048
     Dates: start: 20210403, end: 20210403

REACTIONS (3)
  - Intentional overdose [Unknown]
  - Suicide attempt [Unknown]
  - Somnolence [Unknown]

NARRATIVE: CASE EVENT DATE: 20210403
